FAERS Safety Report 18059252 (Version 1)
Quarter: 2020Q3

REPORT INFORMATION
  Report Type: Report from Study
  Country: DE (occurrence: DE)
  Receive Date: 20200723
  Receipt Date: 20200723
  Transmission Date: 20201103
  Serious: Yes (Death, Other)
  Sender: FDA-Public Use
  Company Number: DE-MYLANLABS-2020M1065211

PATIENT
  Age: 62 Year
  Sex: Female
  Weight: 71 kg

DRUGS (17)
  1. PERTUZUMAB. [Suspect]
     Active Substance: PERTUZUMAB
     Dosage: LOADING DOSE
     Route: 042
     Dates: start: 20131111, end: 20131111
  2. ONDANSETRON [Concomitant]
     Active Substance: ONDANSETRON
     Dosage: 8 MILLIGRAM, QD
     Route: 042
     Dates: start: 20131202, end: 20131202
  3. XGEVA [Concomitant]
     Active Substance: DENOSUMAB
     Dosage: 120 MILLIGRAM
     Route: 058
     Dates: start: 20131021
  4. CALCIUM SANDOZ D [Concomitant]
     Dosage: (FREQUENCY 0.5 DAY)
     Route: 048
     Dates: start: 20131106
  5. CLEMASTIN [Concomitant]
     Active Substance: CLEMASTINE
     Dosage: 2 MILLIGRAM, QD
     Route: 042
     Dates: start: 20131220, end: 20131220
  6. CIPROBAY                           /00697201/ [Concomitant]
     Active Substance: CIPROFLOXACIN
     Dosage: UNK
     Route: 048
     Dates: start: 20131210, end: 201312
  7. TRASTUZUMAB. [Suspect]
     Active Substance: TRASTUZUMAB
     Indication: HER2 POSITIVE BREAST CANCER
     Dosage: 426 MILLIGRAM
     Route: 042
     Dates: start: 20131202
  8. PERTUZUMAB. [Suspect]
     Active Substance: PERTUZUMAB
     Dosage: MAINTAINANCE DOSE
     Route: 042
     Dates: start: 20131202, end: 20131220
  9. CLEMASTIN [Concomitant]
     Active Substance: CLEMASTINE
     Dosage: 2 MILLIGRAM, QD
     Route: 042
     Dates: start: 20131202, end: 20131202
  10. DEXAMETHASON                       /00016001/ [Concomitant]
     Active Substance: DEXAMETHASONE
     Dosage: 8 MILLIGRAM, QD
     Route: 048
     Dates: start: 20131202, end: 20131202
  11. CLEMASTIN [Concomitant]
     Active Substance: CLEMASTINE
     Dosage: 2 MILLIGRAM, QD
     Route: 042
     Dates: start: 20131111, end: 20131111
  12. ONDANSETRON [Concomitant]
     Active Substance: ONDANSETRON
     Dosage: 8 MILLIGRAM, QD
     Route: 042
     Dates: start: 20131220, end: 20131220
  13. DEXAMETHASON                       /00016001/ [Concomitant]
     Active Substance: DEXAMETHASONE
     Dosage: 8 MILLIGRAM, QD
     Route: 048
     Dates: start: 20131111, end: 20131111
  14. TRASTUZUMAB. [Suspect]
     Active Substance: TRASTUZUMAB
     Dosage: 426 MILLIGRAM
     Route: 042
     Dates: start: 20131111, end: 20131111
  15. PERTUZUMAB. [Suspect]
     Active Substance: PERTUZUMAB
     Indication: HER2 POSITIVE BREAST CANCER
     Dosage: 840 MILLIGRAM
     Route: 042
     Dates: start: 20131202
  16. DEXAMETHASON                       /00016001/ [Concomitant]
     Active Substance: DEXAMETHASONE
     Dosage: 8 MILLIGRAM, QD
     Route: 048
     Dates: start: 20131220, end: 20131220
  17. ONDANSETRON [Concomitant]
     Active Substance: ONDANSETRON
     Dosage: 8 MILLIGRAM, QD
     Route: 042
     Dates: start: 20131111, end: 20131111

REACTIONS (4)
  - Death [Fatal]
  - Erythema [Recovered/Resolved]
  - Leukopenia [Recovered/Resolved]
  - Constipation [Not Recovered/Not Resolved]

NARRATIVE: CASE EVENT DATE: 20131112
